FAERS Safety Report 8812587 (Version 1)
Quarter: 2012Q4

REPORT INFORMATION
  Report Type: 
  Country: US (occurrence: US)
  Receive Date: 20120927
  Receipt Date: 20120927
  Transmission Date: 20130627
  Serious: No
  Sender: FDA-Public Use
  Company Number: US-ASTRAZENECA-2012SE71861

PATIENT
  Age: 47 Year
  Sex: Female

DRUGS (10)
  1. NEXIUM [Suspect]
     Indication: OSTEOARTHRITIS
     Route: 048
  2. LISINOPRIL [Suspect]
     Route: 048
  3. GABAPENTIN [Suspect]
     Indication: OSTEOARTHRITIS
     Route: 048
  4. BUPROPION HCL [Concomitant]
  5. PRAVASTATIN SODIUM [Concomitant]
  6. HYDROCHLOROTHIAZIDE [Concomitant]
  7. METFORMIN HCL [Concomitant]
  8. LEVOTHYROXINE SODIUM [Concomitant]
  9. MELOXICAM [Concomitant]
  10. MELOICAM [Concomitant]
     Indication: ARTHRITIS

REACTIONS (2)
  - Osteoarthritis [Unknown]
  - Arthritis [Unknown]
